FAERS Safety Report 7430436-6 (Version None)
Quarter: 2011Q2

REPORT INFORMATION
  Report Type: 
  Country: None (occurrence: None)
  Receive Date: 20110421
  Receipt Date: 20101028
  Transmission Date: 20111010
  Serious: No
  Sender: FDA-Public Use
  Company Number: US-ASTRAZENECA-2010SE51633

PATIENT
  Age: 55 Year
  Sex: Female
  Weight: 88.5 kg

DRUGS (4)
  1. METOPROLOL SUCCINATE [Suspect]
     Indication: ARRHYTHMIA
     Route: 048
     Dates: start: 20090101, end: 20090101
  2. TOPROL-XL [Suspect]
     Route: 048
     Dates: start: 20090101
  3. LISINOPRIL [Concomitant]
  4. TOPROL-XL [Suspect]
     Indication: ARRHYTHMIA
     Route: 048
     Dates: start: 20080101, end: 20090101

REACTIONS (4)
  - ADVERSE EVENT [None]
  - WEIGHT DECREASED [None]
  - NASOPHARYNGITIS [None]
  - PALPITATIONS [None]
